FAERS Safety Report 9148597 (Version 3)
Quarter: 2013Q2

REPORT INFORMATION
  Report Type: Spontaneous
  Country: IT (occurrence: IT)
  Receive Date: 20130308
  Receipt Date: 20130418
  Transmission Date: 20140414
  Serious: Yes (Hospitalization)
  Sender: FDA-Public Use
  Company Number: IT-SANOFI-AVENTIS-2013SA020554

PATIENT
  Age: 91 Year
  Sex: Female

DRUGS (5)
  1. LASIX [Suspect]
     Indication: CARDIAC FAILURE
     Route: 048
     Dates: start: 20100101, end: 20121220
  2. COTAREG [Suspect]
     Indication: HYPERTENSION
     Route: 048
     Dates: start: 20100101, end: 20121220
  3. LANOXIN [Concomitant]
     Indication: CARDIAC FAILURE
     Dosage: STRENGTH: 0.125 MG
     Route: 048
  4. MAVERAL [Concomitant]
     Indication: DEPRESSION
     Dosage: STRENGTH: 50 MG
     Route: 048
  5. LEXOTAN [Concomitant]
     Indication: DEPRESSION
     Dosage: STRENGTH: 1.5 MG
     Route: 048

REACTIONS (3)
  - Psychomotor retardation [Recovered/Resolved]
  - Gait disturbance [Recovered/Resolved]
  - Hyponatraemia [Recovered/Resolved]
